FAERS Safety Report 23051297 (Version 1)
Quarter: 2023Q4

REPORT INFORMATION
  Report Type: Spontaneous
  Country: US (occurrence: US)
  Receive Date: 20231010
  Receipt Date: 20231010
  Transmission Date: 20240109
  Serious: Yes (Other)
  Sender: FDA-Public Use
  Company Number: US-JNJFOC-20231002725

PATIENT
  Sex: Female

DRUGS (1)
  1. LISTERINE COOL MINT ANTISEPTIC [Suspect]
     Active Substance: EUCALYPTOL\MENTHOL\METHYL SALICYLATE\THYMOL
     Indication: Accidental exposure to product
     Dosage: SWALLOWED A LITTLE BIT OF MOUTHWASH
     Route: 048

REACTIONS (3)
  - Pharyngeal haemorrhage [Unknown]
  - Accidental exposure to product [Unknown]
  - Wrong technique in product usage process [Unknown]
